FAERS Safety Report 20608593 (Version 1)
Quarter: 2022Q1

REPORT INFORMATION
  Report Type: Spontaneous
  Country: US (occurrence: US)
  Receive Date: 20220317
  Receipt Date: 20220317
  Transmission Date: 20220424
  Serious: Yes (Life-Threatening, Hospitalization, Other)
  Sender: FDA-Public Use
  Company Number: US-MLMSERVICE-20220307-3410954-4

PATIENT
  Age: 39 Year
  Sex: Female

DRUGS (1)
  1. OXALIPLATIN [Suspect]
     Active Substance: OXALIPLATIN
     Indication: Colorectal cancer metastatic
     Dosage: 12TH STEP OF THE FOURTH-LIFETIME DESENSITIZATION (12-STEP PROTOCOL)

REACTIONS (3)
  - Vaginal haemorrhage [Recovered/Resolved]
  - Immune thrombocytopenia [Recovered/Resolved]
  - Mouth haemorrhage [Recovered/Resolved]
